FAERS Safety Report 25814484 (Version 1)
Quarter: 2025Q3

REPORT INFORMATION
  Report Type: Spontaneous
  Country: GB (occurrence: GB)
  Receive Date: 20250917
  Receipt Date: 20250917
  Transmission Date: 20251021
  Serious: Yes (Hospitalization, Other)
  Sender: JOHNSON AND JOHNSON
  Company Number: GB-CELLTRION INC.-2025GB015248

PATIENT
  Age: 88 Year
  Sex: Male

DRUGS (2)
  1. INFLIXIMAB [Suspect]
     Active Substance: INFLIXIMAB
     Indication: Colitis ulcerative
     Route: 042
  2. INFLIXIMAB [Suspect]
     Active Substance: INFLIXIMAB
     Indication: Colitis ulcerative
     Dosage: 120 MG FORTNIGHTLY/ EOW
     Route: 058
     Dates: start: 20250514

REACTIONS (4)
  - Abdominal pain upper [Not Recovered/Not Resolved]
  - COVID-19 [Not Recovered/Not Resolved]
  - Dehydration [Not Recovered/Not Resolved]
  - Intentional dose omission [Unknown]
